FAERS Safety Report 4813945-5 (Version None)
Quarter: 2005Q4

REPORT INFORMATION
  Report Type: 
  Country: None (occurrence: None)
  Receive Date: 20051028
  Receipt Date: 20041015
  Transmission Date: 20060501
  Serious: No
  Sender: FDA-Public Use
  Company Number: US-GLAXOSMITHKLINE-A0530020A

PATIENT
  Sex: Male

DRUGS (2)
  1. SEREVENT [Suspect]
     Indication: CHRONIC OBSTRUCTIVE PULMONARY DISEASE
     Dosage: 1PUFF TWICE PER DAY
     Route: 055
     Dates: start: 20041001
  2. NO CONCURRENT MEDICATION [Concomitant]

REACTIONS (1)
  - DRUG INEFFECTIVE [None]
